FAERS Safety Report 16037814 (Version 1)
Quarter: 2019Q1

REPORT INFORMATION
  Report Type: Spontaneous
  Country: US (occurrence: US)
  Receive Date: 20190305
  Receipt Date: 20190305
  Transmission Date: 20190418
  Serious: Yes (Other)
  Sender: FDA-Public Use
  Company Number: US-TEVA-2019-US-1015971

PATIENT
  Age: 85 Year

DRUGS (1)
  1. LOSARTAN. [Suspect]
     Active Substance: LOSARTAN
     Indication: BLOOD PRESSURE ABNORMAL
     Dosage: GREEN OVAL WITH IMPRINT 93/7365, USED ALMOST 20 YEARS AND SINCE 10 YEARS, USING TEVA PRODUCT
     Route: 065

REACTIONS (5)
  - Wrong technique in product usage process [Unknown]
  - Drug ineffective [Unknown]
  - Dizziness [Unknown]
  - Depression [Unknown]
  - Blood pressure fluctuation [Unknown]

NARRATIVE: CASE EVENT DATE: 201806
